FAERS Safety Report 5527024-5 (Version None)
Quarter: 2007Q4

REPORT INFORMATION
  Report Type: 
  Country: None (occurrence: None)
  Receive Date: 20071127
  Receipt Date: 20071116
  Transmission Date: 20080405
  Serious: Yes (Other)
  Sender: FDA-Public Use
  Company Number: CH-ELI_LILLY_AND_COMPANY-CH200711003841

PATIENT
  Age: 44 Year
  Sex: Female
  Weight: 62 kg

DRUGS (3)
  1. CYMBALTA [Suspect]
     Indication: DEPRESSION
     Dosage: 60 MG, DAILY (1/D)
     Route: 048
     Dates: start: 20070703, end: 20070831
  2. LITHIUM CARBONATE [Concomitant]
     Indication: BIPOLAR DISORDER
     Dosage: UNK UNK, 2/D
     Route: 048
     Dates: start: 20060101
  3. LAMOTRIGINE [Concomitant]
     Indication: BIPOLAR DISORDER
     Dosage: 200 MG, DAILY (1/D)
     Route: 048
     Dates: start: 20050101

REACTIONS (1)
  - HEPATITIS [None]
